FAERS Safety Report 6186367-5 (Version None)
Quarter: 2009Q2

REPORT INFORMATION
  Report Type: 
  Country: None (occurrence: None)
  Receive Date: 20090511
  Receipt Date: 20090430
  Transmission Date: 20091009
  Serious: Yes (Other)
  Sender: FDA-Public Use
  Company Number: US-JNJCH-2009012270

PATIENT
  Sex: Female

DRUGS (3)
  1. VISINE-A [Suspect]
     Indication: OCULAR HYPERAEMIA
     Dosage: TEXT:2-3 DROPS IN LEFT EYE ONCE
     Route: 047
     Dates: start: 20090430, end: 20090430
  2. THYROID TAB [Concomitant]
     Indication: THYROID DISORDER
     Dosage: TEXT:1MG ONCE DAILY
     Route: 065
  3. AMBIEN [Concomitant]
     Indication: SLEEP DISORDER
     Dosage: TEXT:10MG ONCE DAILY AS NEEDED
     Route: 065

REACTIONS (2)
  - EYE BURNS [None]
  - PRODUCT QUALITY ISSUE [None]
